FAERS Safety Report 5984883-X (Version None)
Quarter: 2008Q4

REPORT INFORMATION
  Report Type: 
  Country: None (occurrence: None)
  Receive Date: 20081208
  Receipt Date: 20071125
  Transmission Date: 20090506
  Serious: No
  Sender: FDA-Public Use
  Company Number: US-AMGEN-KDL253974

PATIENT
  Sex: Female

DRUGS (2)
  1. ENBREL [Suspect]
     Indication: RHEUMATOID ARTHRITIS
     Route: 058
     Dates: start: 19990125
  2. METHOTREXATE [Concomitant]
     Route: 048
     Dates: start: 19870101

REACTIONS (3)
  - ABDOMINAL PAIN [None]
  - HEADACHE [None]
  - TOOTH ABSCESS [None]
